FAERS Safety Report 8820781 (Version 2)
Quarter: 2012Q4

REPORT INFORMATION
  Report Type: 
  Country: US (occurrence: US)
  Receive Date: 20121002
  Receipt Date: 20121008
  Transmission Date: 20130627
  Serious: Yes (Other)
  Sender: FDA-Public Use
  Company Number: US-ASTRAZENECA-2012SE74341

PATIENT
  Age: 21040 Day
  Sex: Male

DRUGS (3)
  1. CRESTOR [Suspect]
     Route: 048
     Dates: start: 2005, end: 201110
  2. LOVASTATIN [Suspect]
     Route: 065
  3. SIMVASTATIN [Suspect]
     Route: 065

REACTIONS (4)
  - Cerebrovascular accident [Unknown]
  - Paraesthesia [Unknown]
  - Laboratory test abnormal [Unknown]
  - Intentional drug misuse [Unknown]
